FAERS Safety Report 9004504 (Version 1)
Quarter: 2012Q4

REPORT INFORMATION
  Report Type: Spontaneous
  Country: BR (occurrence: None)
  Receive Date: 20121227
  Receipt Date: 20121227
  Transmission Date: 20130627
  Serious: Yes (Hospitalization)
  Sender: FDA-Public Use
  Company Number: DSJ-2012-23894

PATIENT
  Age: 8 Decade
  Sex: Female

DRUGS (8)
  1. BENICAR [Suspect]
     Indication: HYPERTENSION
     Dosage: 20 mg, 1 in 1 D
     Route: 048
     Dates: start: 2010, end: 2011
  2. BENICAR [Suspect]
     Indication: HYPERTENSION
     Dosage: 20 mg, 1 in 1 D
     Route: 048
     Dates: start: 2011, end: 2012
  3. BENICAR [Suspect]
     Indication: HYPERTENSION
     Dosage: 20 mg, 1 in 1 D
     Route: 048
     Dates: start: 2012, end: 2012
  4. BENICAR [Suspect]
     Indication: HYPERTENSION
     Dosage: 40 mg, 1
     Route: 048
     Dates: start: 2012
  5. GLIMEPIRIDE (GLIMEPIRIDE) (GLIMEPIRIDE) [Concomitant]
  6. SITAGLIPTIN (SITAGLIPTIN) (SITAGLIPTIN) [Concomitant]
  7. METFORMIN (METFORMIN) (METFORMIN) [Concomitant]
  8. ATORVASTATIN (ATORVASTATIN) (ATORVASTATIN) [Concomitant]

REACTIONS (5)
  - Drug ineffective [None]
  - Blood pressure systolic increased [None]
  - Angina pectoris [None]
  - Aortic arteriosclerosis [None]
  - Cardiac arrest [None]
